FAERS Safety Report 22201730 (Version 2)
Quarter: 2023Q2

REPORT INFORMATION
  Report Type: Report from Study
  Country: US (occurrence: None)
  Receive Date: 20230412
  Receipt Date: 20230418
  Transmission Date: 20230721
  Serious: Yes (Hospitalization)
  Sender: FDA-Public Use
  Company Number: US-ROCHE-3326093

PATIENT

DRUGS (2)
  1. TRASTUZUMAB [Suspect]
     Active Substance: TRASTUZUMAB
     Indication: Neoplasm malignant
     Dosage: 600.0 MG/DOSE, MOST RECENT DOSE OF STUDY DRUG RECEIVED ON 08/MAR/2023
     Route: 058
     Dates: start: 20230106
  2. TUCATINIB [Suspect]
     Active Substance: TUCATINIB
     Indication: Neoplasm malignant
     Dosage: 300.0 MG/DAY, MOST RECENT DOSE OF STUDY DRUG RECEIVED ON 08/MAR/2023
     Route: 048
     Dates: start: 20230106

REACTIONS (5)
  - Pleural effusion [Recovered/Resolved]
  - Pericardial effusion [Recovered/Resolved]
  - Troponin T increased [Recovering/Resolving]
  - Sinus tachycardia [Recovered/Resolved]
  - Cardiac failure [Recovered/Resolved with Sequelae]

NARRATIVE: CASE EVENT DATE: 20230319
